FAERS Safety Report 21976825 (Version 1)
Quarter: 2023Q1

REPORT INFORMATION
  Report Type: Spontaneous
  Country: US (occurrence: US)
  Receive Date: 20230210
  Receipt Date: 20230210
  Transmission Date: 20230417
  Serious: No
  Sender: FDA-Public Use
  Company Number: US-SA-SAC20230209000504

PATIENT
  Age: 58 Year
  Sex: Female

DRUGS (4)
  1. DUPIXENT [Suspect]
     Active Substance: DUPILUMAB
     Indication: Dermatitis atopic
     Dosage: 300 MG, QOW
     Route: 058
     Dates: start: 202002
  2. CEPHALEXIN [Concomitant]
     Active Substance: CEPHALEXIN
  3. FUROSEMIDE [Concomitant]
     Active Substance: FUROSEMIDE
     Dosage: 20 MG DAILY
  4. POTASSIUM CHLORIDE [Concomitant]
     Active Substance: POTASSIUM CHLORIDE

REACTIONS (6)
  - Oedema peripheral [Recovering/Resolving]
  - Blister [Recovering/Resolving]
  - Skin ulcer [Unknown]
  - Poor peripheral circulation [Unknown]
  - Pollakiuria [Unknown]
  - Rash [Unknown]

NARRATIVE: CASE EVENT DATE: 20230203
